FAERS Safety Report 8909204 (Version 1)
Quarter: 2012Q4

REPORT INFORMATION
  Report Type: Spontaneous
  Country: DE (occurrence: None)
  Receive Date: 20121107
  Receipt Date: 20121107
  Transmission Date: 20130627
  Serious: Yes (Other)
  Sender: FDA-Public Use
  Company Number: AUR-APL-2012-04566

PATIENT
  Age: 55 Year
  Sex: Female
  Weight: 82 kg

DRUGS (1)
  1. RAMIPRIL (RAMIPRIL) [Suspect]
     Indication: INCREASED BLOOD PRESSURE
     Route: 048
     Dates: start: 2012, end: 2012

REACTIONS (5)
  - Nasopharyngitis [None]
  - Cough [None]
  - Fatigue [None]
  - Pain in extremity [None]
  - Throat irritation [None]
